FAERS Safety Report 19439416 (Version 2)
Quarter: 2021Q2

REPORT INFORMATION
  Report Type: Spontaneous
  Country: AU (occurrence: AU)
  Receive Date: 20210618
  Receipt Date: 20210628
  Transmission Date: 20210717
  Serious: Yes (Hospitalization, Other)
  Sender: FDA-Public Use
  Company Number: NVSC2021AU131776

PATIENT
  Sex: Male

DRUGS (2)
  1. ATGAM [Concomitant]
     Active Substance: EQUINE THYMOCYTE IMMUNE GLOBULIN
     Indication: PRODUCT USED FOR UNKNOWN INDICATION
     Dosage: UNK, RECEIVED 21 DAYS AGO
     Route: 065
  2. CYCLOSPORINE. [Suspect]
     Active Substance: CYCLOSPORINE
     Indication: APLASTIC ANAEMIA
     Dosage: UNK, RECEIVED 21 DAYS AGO
     Route: 065

REACTIONS (2)
  - Neutropenic sepsis [Unknown]
  - Neutrophil count increased [Unknown]
